FAERS Safety Report 9944476 (Version 1)
Quarter: 2014Q1

REPORT INFORMATION
  Report Type: Report from Study
  Country: US (occurrence: US)
  Receive Date: 20140303
  Receipt Date: 20140303
  Transmission Date: 20141002
  Serious: Yes (Hospitalization)
  Sender: FDA-Public Use
  Company Number: US-ABBVIE-13P-163-1051446-00

PATIENT
  Age: 29 Year
  Sex: Female
  Weight: 67.19 kg

DRUGS (23)
  1. HUMIRA [Suspect]
     Indication: CROHN^S DISEASE
     Route: 050
     Dates: start: 20120613, end: 20121103
  2. HUMIRA [Suspect]
     Indication: ANKYLOSING SPONDYLITIS
     Route: 050
     Dates: start: 20121117, end: 20130104
  3. HUMIRA [Suspect]
     Route: 050
     Dates: start: 20130112
  4. PRENATAL VITAMINS [Concomitant]
     Indication: PRODUCT USED FOR UNKNOWN INDICATION
     Route: 048
     Dates: start: 20120701
  5. VITAMIN D [Concomitant]
     Indication: PRODUCT USED FOR UNKNOWN INDICATION
     Route: 048
     Dates: start: 20120720
  6. CAFFEINE [Concomitant]
     Indication: PRODUCT USED FOR UNKNOWN INDICATION
     Dosage: SODA, ROOT BEER, 0.5 SERVING 1.5 IN 1 WK
     Route: 048
     Dates: start: 20120723
  7. FRAGMIN [Concomitant]
     Indication: ANTIPHOSPHOLIPID SYNDROME
     Route: 050
     Dates: start: 20120713
  8. COUMADIN [Concomitant]
     Indication: ANTIPHOSPHOLIPID SYNDROME
     Route: 048
     Dates: start: 20120613, end: 20120712
  9. PANTOPRAZOLE SODIUM [Concomitant]
     Indication: GASTRITIS
     Route: 048
     Dates: start: 20120613, end: 20120716
  10. CLONAZEPAM [Concomitant]
     Indication: INSOMNIA
     Route: 048
     Dates: start: 20120613, end: 20120716
  11. LYRICA [Concomitant]
     Indication: FIBROMYALGIA
     Route: 048
     Dates: start: 20120613, end: 20120713
  12. FENTANYL [Concomitant]
     Indication: PAIN
     Dosage: FACE, SCALP
     Route: 061
     Dates: start: 20120613, end: 20120901
  13. FENTANYL [Concomitant]
     Indication: PAIN
     Dosage: FACE, SCALP, 2.3 PER WEEK
     Route: 061
     Dates: start: 20120902, end: 20120915
  14. FENTANYL [Concomitant]
     Dosage: FACE, SCALP, 2.3 PER WEEK
     Route: 061
     Dates: start: 20120916, end: 20120930
  15. GRAVOL [Concomitant]
     Indication: NAUSEA
     Route: 048
     Dates: start: 20120727, end: 20120803
  16. GRAVOL [Concomitant]
     Dosage: 2 PILL
     Route: 048
     Dates: start: 20120614, end: 20121201
  17. TYLENOL [Concomitant]
     Indication: ARTHRALGIA
     Route: 048
     Dates: start: 20120727, end: 20120803
  18. TYLENOL [Concomitant]
     Indication: HEADACHE
     Route: 048
     Dates: start: 20120804, end: 20130102
  19. TYLENOL [Concomitant]
     Route: 048
     Dates: start: 20130103, end: 20130105
  20. TYLENOL [Concomitant]
     Route: 048
     Dates: start: 20130106, end: 20130110
  21. TUMS [Concomitant]
     Indication: GASTROOESOPHAGEAL REFLUX DISEASE
     Route: 048
     Dates: start: 20121025, end: 20121215
  22. COFFEE [Concomitant]
     Indication: PRODUCT USED FOR UNKNOWN INDICATION
     Dosage: 1 CUP, 2-3X PER, 1 SERVING, 2.5 WK
     Dates: start: 20121225
  23. AMOXICILLIN [Concomitant]
     Indication: SINUSITIS
     Route: 048
     Dates: start: 20130104, end: 20130110

REACTIONS (13)
  - Local swelling [Recovered/Resolved]
  - Muscle spasms [Unknown]
  - Pyrexia [Recovered/Resolved]
  - Gastritis [Recovered/Resolved]
  - Insomnia [Recovered/Resolved]
  - Nausea [Recovered/Resolved]
  - Kidney infection [Recovered/Resolved]
  - Gastrooesophageal reflux disease [Recovered/Resolved]
  - Influenza [Recovered/Resolved]
  - Sinusitis [Recovered/Resolved]
  - Headache [Recovered/Resolved]
  - Arthralgia [Unknown]
  - Pain [Unknown]
